FAERS Safety Report 8631686 (Version 2)
Quarter: 2013Q2

REPORT INFORMATION
  Report Type: Spontaneous
  Country: US (occurrence: US)
  Receive Date: 20120625
  Receipt Date: 20130618
  Transmission Date: 20140414
  Serious: No
  Sender: FDA-Public Use
  Company Number: US-BIOGENIDEC-2012BI022007

PATIENT
  Sex: Female

DRUGS (1)
  1. TYSABRI [Suspect]
     Indication: MULTIPLE SCLEROSIS
     Route: 042
     Dates: start: 20111103, end: 20120321

REACTIONS (3)
  - Hypoaesthesia [Recovered/Resolved with Sequelae]
  - Dysstasia [Recovered/Resolved with Sequelae]
  - Fall [Recovered/Resolved]
